FAERS Safety Report 7326762-1 (Version None)
Quarter: 2011Q1

REPORT INFORMATION
  Report Type: 
  Country: None (occurrence: None)
  Receive Date: 20110302
  Receipt Date: 20090912
  Transmission Date: 20110831
  Serious: Yes (Death, Hospitalization)
  Sender: FDA-Public Use
  Company Number: US-BAYER-200932582NA

PATIENT
  Sex: Male
  Weight: 68.027 kg

DRUGS (12)
  1. DOBUTAMINE HCL [Concomitant]
     Dosage: UNK UNK, Q1HR
     Route: 042
     Dates: start: 20071219
  2. HEPARIN [Concomitant]
     Dosage: 15000 U, UNK
     Route: 042
     Dates: start: 20071219
  3. RED BLOOD CELLS [Concomitant]
     Dosage: 3 U, ONCE
     Route: 042
  4. ALBUMIN (HUMAN) [Concomitant]
     Dosage: 1 U, UNK
  5. TRASYLOL [Suspect]
     Indication: CORONARY ARTERY BYPASS
     Dosage: UNK
     Route: 042
     Dates: start: 20071219, end: 20071219
  6. LASIX [Concomitant]
     Dosage: 40 MG, BID
     Route: 048
  7. HYDRALAZINE [Concomitant]
     Dosage: 10 MG, TID
     Route: 048
  8. AMIODARONE [Concomitant]
     Dosage: 400 MG, BID
     Route: 048
  9. DOBUTREX [Concomitant]
     Dosage: UNK
     Route: 042
     Dates: start: 20071217
  10. PROTONIX [Concomitant]
     Dosage: 40 MG, QD
     Route: 048
  11. ALBUTEROL [Concomitant]
     Dosage: UNK UNK, PRN
     Route: 048
  12. OMNIPAQUE 140 [Concomitant]
     Dosage: 100 ML, UNK
     Dates: start: 20071218

REACTIONS (3)
  - DEATH [None]
  - UNEVALUABLE EVENT [None]
  - INJURY [None]
